FAERS Safety Report 16237424 (Version 1)
Quarter: 2019Q2

REPORT INFORMATION
  Report Type: Spontaneous
  Country: US (occurrence: US)
  Receive Date: 20190424
  Receipt Date: 20190424
  Transmission Date: 20190711
  Serious: Yes (Other)
  Sender: FDA-Public Use
  Company Number: None

PATIENT
  Age: 38 Year
  Sex: Female
  Weight: 69.75 kg

DRUGS (6)
  1. SERTRALINE [Concomitant]
     Active Substance: SERTRALINE HYDROCHLORIDE
  2. VITAMIN B [Concomitant]
     Active Substance: VITAMIN B
  3. EMGALITY [Suspect]
     Active Substance: GALCANEZUMAB-GNLM
     Indication: MIGRAINE
     Dosage: ?          QUANTITY:2 INJECTION(S);OTHER ROUTE:SUBCUTANEOUS INJECTION?
     Dates: start: 20190404, end: 20190404
  4. WELLBUTRIN [Concomitant]
     Active Substance: BUPROPION HYDROCHLORIDE
  5. VITAMIN D [Concomitant]
     Active Substance: VITAMIN D NOS
  6. IRON [Concomitant]
     Active Substance: IRON

REACTIONS (9)
  - Crying [None]
  - Somnolence [None]
  - Lethargy [None]
  - Depression [None]
  - Anhedonia [None]
  - Feeling abnormal [None]
  - Fatigue [None]
  - Anger [None]
  - Disturbance in attention [None]

NARRATIVE: CASE EVENT DATE: 20190408
